FAERS Safety Report 4426940-5 (Version None)
Quarter: 2004Q3

REPORT INFORMATION
  Report Type: 
  Country: None (occurrence: None)
  Receive Date: 20040811
  Receipt Date: 20040727
  Transmission Date: 20050211
  Serious: Yes (Hospitalization)
  Sender: FDA-Public Use
  Company Number: 201185

PATIENT
  Age: 53 Year
  Sex: Male

DRUGS (19)
  1. AVONEX [Suspect]
     Indication: MULTIPLE SCLEROSIS
     Dosage: 30 MCG QW IM
     Route: 030
     Dates: start: 19990101
  2. AVONEX [Suspect]
     Indication: MULTIPLE SCLEROSIS
     Dosage: 30 MCG QW IM
     Route: 030
  3. COPAXONE [Concomitant]
  4. AVANDIA [Concomitant]
  5. GLUCOPHAGE [Concomitant]
  6. DIAZEPAM [Concomitant]
  7. METOPROLOL [Concomitant]
  8. FLOMAX ^CHIESI^ [Concomitant]
  9. ACCUPRIL [Concomitant]
  10. HYDROCODONE [Concomitant]
  11. ACETAMINOPHEN [Concomitant]
  12. FUROSEMIDE [Concomitant]
  13. K-DUR 10 [Concomitant]
  14. PREVACID [Concomitant]
  15. CLARINEX [Concomitant]
  16. ZOCOR [Concomitant]
  17. VIAGRA [Concomitant]
  18. TRICOR [Concomitant]
  19. DETROL - SLOW RELEASE [Concomitant]

REACTIONS (3)
  - ANAL FISTULA [None]
  - ANORECTAL INFECTION [None]
  - PERIRECTAL ABSCESS [None]
